FAERS Safety Report 24790688 (Version 3)
Quarter: 2025Q1

REPORT INFORMATION
  Report Type: Spontaneous
  Country: CA (occurrence: CA)
  Receive Date: 20241230
  Receipt Date: 20250206
  Transmission Date: 20250408
  Serious: Yes (Hospitalization, Other)
  Sender: MYLAN
  Company Number: CA-MYLANLABS-2024M1115280

PATIENT
  Age: 62 Year
  Sex: Female
  Weight: 85 kg

DRUGS (36)
  1. AMLODIPINE [Interacting]
     Active Substance: AMLODIPINE BESYLATE
     Indication: Product used for unknown indication
     Route: 065
  2. ACTEMRA [Interacting]
     Active Substance: TOCILIZUMAB
     Indication: Rheumatoid arthritis
     Dosage: 544 MILLIGRAM, MONTHLY (1 EVERY 4 WEEKS)
     Route: 042
  3. ACTEMRA [Interacting]
     Active Substance: TOCILIZUMAB
     Route: 042
  4. ACTEMRA [Interacting]
     Active Substance: TOCILIZUMAB
     Dosage: 680 MILLIGRAM, MONTHLY (1 EVERY 4 WEEKS)
     Route: 042
  5. ACTEMRA [Interacting]
     Active Substance: TOCILIZUMAB
     Dosage: 616 MILLIGRAM, MONTHLY (1 EVERY 4 WEEKS)
     Route: 042
  6. ACTEMRA [Interacting]
     Active Substance: TOCILIZUMAB
     Indication: Rheumatoid arthritis
     Dosage: 590 MILLIGRAM, MONTHLY (1 EVERY 4 WEEKS)
     Route: 042
  7. ACTEMRA [Interacting]
     Active Substance: TOCILIZUMAB
     Dosage: 544 MILLIGRAM, MONTHLY (1 EVERY 4 WEEKS)
     Route: 042
  8. CIPROFLOXACIN [Interacting]
     Active Substance: CIPROFLOXACIN
     Indication: Lower respiratory tract infection
     Dosage: 2 DOSAGE FORM, QD (1 EVERY 1 DAYS)
     Route: 048
  9. CIPROFLOXACIN [Interacting]
     Active Substance: CIPROFLOXACIN
     Indication: Sinusitis
     Route: 048
  10. CIPROFLOXACIN [Interacting]
     Active Substance: CIPROFLOXACIN
     Indication: Lower respiratory tract infection
  11. CIPROFLOXACIN [Interacting]
     Active Substance: CIPROFLOXACIN
     Indication: Sinusitis
     Route: 065
  12. CIPROFLOXACIN [Interacting]
     Active Substance: CIPROFLOXACIN
     Indication: Lower respiratory tract infection
  13. AZITHROMYCIN [Interacting]
     Active Substance: AZITHROMYCIN
     Indication: Product used for unknown indication
     Route: 065
  14. ESOMEPRAZOLE MAGNESIUM [Interacting]
     Active Substance: ESOMEPRAZOLE MAGNESIUM
     Indication: Product used for unknown indication
     Dosage: 40 MILLIGRAM, BID (2 EVERY 1 DAYS)
     Route: 065
  15. PERINDOPRIL [Interacting]
     Active Substance: PERINDOPRIL
     Indication: Product used for unknown indication
     Dosage: 8 MILLIGRAM, QD (1 EVERY 1 DAYS)
     Route: 065
  16. ACTEMRA [Interacting]
     Active Substance: TOCILIZUMAB
     Indication: Rheumatoid arthritis
     Dosage: 590 MILLIGRAM, MONTHLY (1 EVERY 4 WEEKS)
     Route: 042
  17. ACTEMRA [Interacting]
     Active Substance: TOCILIZUMAB
     Dosage: 680 MILLIGRAM, MONTHLY (1 EVERY 4 WEEKS)
     Route: 042
  18. ACTEMRA [Interacting]
     Active Substance: TOCILIZUMAB
     Dosage: 616 MILLIGRAM, MONTHLY (1 EVERY 4 WEEKS)
     Route: 042
  19. DOMPERIDONE [Interacting]
     Active Substance: DOMPERIDONE
     Indication: Hiatus hernia
     Dosage: 10 MILLIGRAM, Q8H (1 EVERY 8 HOURS)
     Route: 048
  20. DOMPERIDONE [Interacting]
     Active Substance: DOMPERIDONE
     Dosage: 10 MILLIGRAM, QID (4 EVERY 1 DAYS)
     Route: 048
  21. ATENOLOL [Concomitant]
     Active Substance: ATENOLOL
     Indication: Product used for unknown indication
     Dosage: 25 MILLIGRAM, BID (2 EVERY 1 DAYS)
     Route: 065
  22. ATIVAN [Concomitant]
     Active Substance: LORAZEPAM
     Indication: Product used for unknown indication
     Route: 065
  23. DICYCLOMINE HYDROCHLORIDE [Concomitant]
     Active Substance: DICYCLOMINE HYDROCHLORIDE
     Indication: Product used for unknown indication
     Route: 065
  24. DICYCLOMINE HYDROCHLORIDE [Concomitant]
     Active Substance: DICYCLOMINE HYDROCHLORIDE
     Route: 065
  25. ESOMEPRAZOLE [Concomitant]
     Active Substance: ESOMEPRAZOLE
     Dosage: 40 MILLIGRAM, BID (2 EVERY 1 DAYS)
     Route: 065
  26. HYDROCHLOROTHIAZIDE [Concomitant]
     Active Substance: HYDROCHLOROTHIAZIDE
     Indication: Product used for unknown indication
     Route: 065
  27. PERINDOPRIL [Concomitant]
     Active Substance: PERINDOPRIL
     Dosage: 8 MILLIGRAM, QD (1 EVERY 1 DAYS)
     Route: 065
  28. PREDNISONE [Concomitant]
     Active Substance: PREDNISONE
     Dosage: 7.5 MILLIGRAM, QD (1 EVERY 1 DAYS)
     Route: 048
  29. EZETIMIBE [Concomitant]
     Active Substance: EZETIMIBE
     Dosage: 10 MILLIGRAM, QD (1 EVERY 1 DAYS)
     Route: 065
  30. IRBESARTAN [Concomitant]
     Active Substance: IRBESARTAN
     Dosage: 25 MILLIGRAM, BID (2 EVERY 1 DAYS)
     Route: 065
  31. FENOFIBRATE [Concomitant]
     Active Substance: FENOFIBRATE
     Route: 065
  32. PANTOPRAZOLE SODIUM [Concomitant]
     Active Substance: PANTOPRAZOLE SODIUM
     Dosage: 25 MILLIGRAM, BID ( 2 EVERY 1 DAYS)
     Route: 065
  33. PAROXETINE HYDROCHLORIDE [Concomitant]
     Active Substance: PAROXETINE HYDROCHLORIDE
     Route: 065
  34. PAROXETINE HYDROCHLORIDE [Concomitant]
     Active Substance: PAROXETINE HYDROCHLORIDE
     Route: 048
  35. SIMVASTATIN [Concomitant]
     Active Substance: SIMVASTATIN
     Route: 065
  36. PANTOPRAZOLE MAGNESIUM [Concomitant]
     Active Substance: PANTOPRAZOLE MAGNESIUM
     Route: 065

REACTIONS (73)
  - Blood pressure systolic increased [Not Recovered/Not Resolved]
  - Glossodynia [Not Recovered/Not Resolved]
  - Oral pain [Not Recovered/Not Resolved]
  - Anxiety [Not Recovered/Not Resolved]
  - Aphthous ulcer [Not Recovered/Not Resolved]
  - Blood cholesterol increased [Not Recovered/Not Resolved]
  - Blood pressure diastolic abnormal [Not Recovered/Not Resolved]
  - Blood pressure fluctuation [Not Recovered/Not Resolved]
  - Blood pressure increased [Not Recovered/Not Resolved]
  - Blood pressure systolic abnormal [Not Recovered/Not Resolved]
  - Chronic sinusitis [Not Recovered/Not Resolved]
  - Constipation [Not Recovered/Not Resolved]
  - Contusion [Not Recovered/Not Resolved]
  - Diarrhoea [Not Recovered/Not Resolved]
  - Drug interaction [Not Recovered/Not Resolved]
  - Fall [Not Recovered/Not Resolved]
  - Fungal infection [Not Recovered/Not Resolved]
  - Glossitis [Not Recovered/Not Resolved]
  - Hip fracture [Not Recovered/Not Resolved]
  - Hyperkeratosis [Not Recovered/Not Resolved]
  - Increased appetite [Not Recovered/Not Resolved]
  - Influenza [Not Recovered/Not Resolved]
  - Infusion related reaction [Not Recovered/Not Resolved]
  - Injection site extravasation [Not Recovered/Not Resolved]
  - Injection site pain [Not Recovered/Not Resolved]
  - Joint dislocation [Not Recovered/Not Resolved]
  - Joint stiffness [Not Recovered/Not Resolved]
  - Loss of personal independence in daily activities [Not Recovered/Not Resolved]
  - Lower respiratory tract infection [Not Recovered/Not Resolved]
  - Musculoskeletal pain [Not Recovered/Not Resolved]
  - Musculoskeletal stiffness [Not Recovered/Not Resolved]
  - Nasal congestion [Not Recovered/Not Resolved]
  - Nasal discomfort [Not Recovered/Not Resolved]
  - Nasal dryness [Not Recovered/Not Resolved]
  - Neoplasm [Not Recovered/Not Resolved]
  - Oral herpes [Not Recovered/Not Resolved]
  - Oropharyngeal pain [Not Recovered/Not Resolved]
  - Osteoarthritis [Not Recovered/Not Resolved]
  - Osteoporosis [Not Recovered/Not Resolved]
  - Oxygen saturation decreased [Not Recovered/Not Resolved]
  - Pain in extremity [Not Recovered/Not Resolved]
  - Pain in jaw [Not Recovered/Not Resolved]
  - Paranasal sinus discomfort [Not Recovered/Not Resolved]
  - Psoriasis [Not Recovered/Not Resolved]
  - Red blood cell sedimentation rate increased [Not Recovered/Not Resolved]
  - Rhinalgia [Not Recovered/Not Resolved]
  - Sinus congestion [Not Recovered/Not Resolved]
  - Sinusitis [Not Recovered/Not Resolved]
  - Skin laceration [Not Recovered/Not Resolved]
  - Stress [Not Recovered/Not Resolved]
  - Swelling [Not Recovered/Not Resolved]
  - Swelling face [Not Recovered/Not Resolved]
  - Throat irritation [Not Recovered/Not Resolved]
  - Upper-airway cough syndrome [Not Recovered/Not Resolved]
  - Urinary tract infection [Not Recovered/Not Resolved]
  - Vulvovaginal burning sensation [Not Recovered/Not Resolved]
  - Vulvovaginal pruritus [Not Recovered/Not Resolved]
  - Joint swelling [Not Recovered/Not Resolved]
  - Arthralgia [Not Recovered/Not Resolved]
  - White blood cell count decreased [Not Recovered/Not Resolved]
  - Heart rate decreased [Not Recovered/Not Resolved]
  - Blood pressure diastolic decreased [Not Recovered/Not Resolved]
  - Abdominal pain [Not Recovered/Not Resolved]
  - Abdominal pain lower [Not Recovered/Not Resolved]
  - Abdominal pain upper [Not Recovered/Not Resolved]
  - Chest pain [Not Recovered/Not Resolved]
  - Cough [Not Recovered/Not Resolved]
  - Dizziness [Not Recovered/Not Resolved]
  - Headache [Not Recovered/Not Resolved]
  - Pain [Not Recovered/Not Resolved]
  - Palpitations [Not Recovered/Not Resolved]
  - Weight increased [Not Recovered/Not Resolved]
  - Drug ineffective [Not Recovered/Not Resolved]
